FAERS Safety Report 12886170 (Version 1)
Quarter: 2016Q4

REPORT INFORMATION
  Report Type: Spontaneous
  Country: FR (occurrence: FR)
  Receive Date: 20161026
  Receipt Date: 20161026
  Transmission Date: 20170207
  Serious: Yes (Other)
  Sender: FDA-Public Use
  Company Number: FR-PFIZER INC-2016493251

PATIENT
  Age: 75 Year
  Sex: Male

DRUGS (2)
  1. PIROXICAM. [Suspect]
     Active Substance: PIROXICAM
     Indication: MUSCULOSKELETAL PAIN
     Dosage: UNK UNK, DAILY
     Route: 048
  2. LAMALINE [Concomitant]
     Active Substance: ACETAMINOPHEN\CAFFEINE\OPIUM
     Dosage: 3-4 DF, DAILY

REACTIONS (3)
  - Vision blurred [Unknown]
  - Diabetes mellitus [Unknown]
  - Product use issue [Unknown]
